FAERS Safety Report 5844739-X (Version None)
Quarter: 2008Q3

REPORT INFORMATION
  Report Type: 
  Country: None (occurrence: None)
  Receive Date: 20080814
  Receipt Date: 20080806
  Transmission Date: 20090109
  Serious: Yes (Life-Threatening, Hospitalization, Other)
  Sender: FDA-Public Use
  Company Number: NL-JNJFOC-20080800591

PATIENT
  Age: 49 Year
  Sex: Male

DRUGS (6)
  1. HALDOL [Suspect]
  2. HALDOL [Suspect]
     Indication: PSYCHOTIC DISORDER
  3. ANTIVIRAL MEDICATION [Suspect]
     Indication: ENCEPHALITIS VIRAL
     Route: 065
  4. SALMETEROL [Concomitant]
     Route: 065
  5. FEXOFENADINE [Concomitant]
     Route: 065
  6. TEMAZEPAM [Concomitant]
     Route: 065

REACTIONS (7)
  - ACUTE RESPIRATORY DISTRESS SYNDROME [None]
  - ENCEPHALITIS LETHARGICA [None]
  - ILEUS [None]
  - NEUROLOGICAL SYMPTOM [None]
  - PNEUMONIA ASPIRATION [None]
  - SPASMODIC DYSPHONIA [None]
  - UROSEPSIS [None]
